FAERS Safety Report 10276503 (Version 2)
Quarter: 2014Q3

REPORT INFORMATION
  Report Type: Spontaneous
  Country: US (occurrence: US)
  Receive Date: 20140703
  Receipt Date: 20140717
  Transmission Date: 20150326
  Serious: No
  Sender: FDA-Public Use
  Company Number: US-009507513-1407USA001776

PATIENT
  Age: 57 Year
  Sex: Female
  Weight: 77.98 kg

DRUGS (13)
  1. ASCORBIC ACID. [Concomitant]
     Active Substance: ASCORBIC ACID
     Indication: MYASTHENIA GRAVIS
     Dosage: UNK, UNKNOWN
  2. PREDNISONE. [Concomitant]
     Active Substance: PREDNISONE
     Indication: SYSTEMIC LUPUS ERYTHEMATOSUS
     Dosage: UNK, UNKNOWN
  3. CARBAMAZEPINE. [Concomitant]
     Active Substance: CARBAMAZEPINE
     Indication: NEUROPATHY PERIPHERAL
     Dosage: UNK, UNKNOWN
  4. OXYCODONE [Concomitant]
     Active Substance: OXYCODONE
     Indication: MULTIPLE SCLEROSIS
  5. VITAMIN E [Concomitant]
     Active Substance: .ALPHA.-TOCOPHEROL
     Indication: MYASTHENIA GRAVIS
     Dosage: UNK, UNKNOWN
  6. CYCLOBENZAPRINE HYDROCHLORIDE. [Concomitant]
     Active Substance: CYCLOBENZAPRINE HYDROCHLORIDE
     Indication: SYSTEMIC LUPUS ERYTHEMATOSUS
     Dosage: UNK, UNKNOWN
  7. OXYCODONE [Concomitant]
     Active Substance: OXYCODONE
     Indication: PAIN
     Dosage: UNK, UNKNOWN
  8. OXYTROL FOR WOMEN [Suspect]
     Active Substance: OXYBUTYNIN
     Indication: HYPERTONIC BLADDER
     Dosage: 1 DF, Q4D
     Route: 062
     Dates: start: 20140601
  9. VITAMIN D [Concomitant]
     Active Substance: CHOLECALCIFEROL
     Indication: MYASTHENIA GRAVIS
     Dosage: UNK, UNKNOWN
  10. ACETAMINOPHEN. [Concomitant]
     Active Substance: ACETAMINOPHEN
     Indication: PAIN
     Dosage: UNK, UNKNOWN
  11. OXYTROL FOR WOMEN [Suspect]
     Active Substance: OXYBUTYNIN
     Indication: INCONTINENCE
  12. PYRIDOSTIGMINE BROMIDE. [Concomitant]
     Active Substance: PYRIDOSTIGMINE BROMIDE
     Indication: MYASTHENIA GRAVIS
     Dosage: UNK, UNKNOWN
  13. ACETAMINOPHEN. [Concomitant]
     Active Substance: ACETAMINOPHEN
     Indication: MULTIPLE SCLEROSIS

REACTIONS (3)
  - Application site pain [Recovered/Resolved]
  - Skin lesion [Recovered/Resolved]
  - Product adhesion issue [Unknown]

NARRATIVE: CASE EVENT DATE: 201406
